FAERS Safety Report 8623175-7 (Version None)
Quarter: 2012Q3

REPORT INFORMATION
  Report Type: 
  Country: None (occurrence: None)
  Receive Date: 20120827
  Receipt Date: 20120822
  Transmission Date: 20120928
  Serious: Yes (Other)
  Sender: FDA-Public Use
  Company Number: PHHY2012CA042990

PATIENT
  Sex: Female

DRUGS (5)
  1. ZOLEDRONOC ACID [Suspect]
     Indication: OSTEOPOROSIS
     Route: 042
     Dates: start: 20110815
  2. PROZAC [Concomitant]
     Dosage: 40 MG, QD
  3. WELLBUTRIN [Concomitant]
     Dosage: 300 MG, BID
  4. AMITRIPTYLINE HYDROCHLORIDE [Concomitant]
     Dosage: 75 MG, UNK
  5. FENTANYL [Concomitant]

REACTIONS (1)
  - DEPRESSION [None]
